FAERS Safety Report 6894815-8 (Version None)
Quarter: 2010Q3

REPORT INFORMATION
  Report Type: 
  Country: None (occurrence: None)
  Receive Date: 20100728
  Receipt Date: 20100716
  Transmission Date: 20110219
  Serious: Yes (Other)
  Sender: FDA-Public Use
  Company Number: 2010US002866

PATIENT
  Age: 66 Year
  Sex: Female

DRUGS (5)
  1. PROGRAF [Suspect]
     Indication: LIVER TRANSPLANT
  2. MYCOPHENOLATE MOFETIL [Suspect]
     Indication: LIVER TRANSPLANT
  3. PREDNISONE [Suspect]
     Indication: LIVER TRANSPLANT
  4. GANCICLOVIR [Suspect]
     Indication: HEPATITIS C
  5. GANCICLOVIR [Suspect]
     Indication: PROPHYLAXIS

REACTIONS (10)
  - DIABETES MELLITUS [None]
  - DISEASE RECURRENCE [None]
  - HEPATIC FIBROSIS [None]
  - HEPATITIS C [None]
  - JAUNDICE [None]
  - LIVER FUNCTION TEST ABNORMAL [None]
  - LIVER TRANSPLANT REJECTION [None]
  - PANCYTOPENIA [None]
  - SEPSIS [None]
  - VENA CAVA THROMBOSIS [None]
